FAERS Safety Report 10255819 (Version 1)
Quarter: 2014Q2

REPORT INFORMATION
  Report Type: Spontaneous
  Country: US (occurrence: US)
  Receive Date: 20140624
  Receipt Date: 20140624
  Transmission Date: 20141212
  Serious: No
  Sender: FDA-Public Use
  Company Number: US-ZOGENIX, INC.-2011ZX000603

PATIENT
  Age: 49 Year
  Sex: Male
  Weight: 79.45 kg

DRUGS (6)
  1. SUMAVEL DOSEPRO [Suspect]
     Indication: MIGRAINE
  2. VERAPAMIL [Concomitant]
     Indication: BLOOD PRESSURE
  3. DEPAKOTE [Concomitant]
     Indication: BLOOD GLUCOSE ABNORMAL
  4. CLONAZEPAM [Concomitant]
     Indication: SLEEP DISORDER
  5. HCTZ [Concomitant]
     Indication: BLOOD PRESSURE
  6. AMITRIPTYLINE [Concomitant]
     Indication: MIGRAINE

REACTIONS (4)
  - Tinnitus [Recovered/Resolved]
  - Device malfunction [Recovered/Resolved]
  - Injection site erythema [Recovered/Resolved]
  - Accidental exposure to product [Recovered/Resolved]
